FAERS Safety Report 10929500 (Version 1)
Quarter: 2015Q1

REPORT INFORMATION
  Report Type: Spontaneous
  Country: US (occurrence: None)
  Receive Date: 20150317
  Receipt Date: 20150317
  Transmission Date: 20150721
  Serious: Yes (Hospitalization)
  Sender: FDA-Public Use
  Company Number: None

PATIENT
  Age: 44 Year
  Sex: Female

DRUGS (1)
  1. FENOFIBRATE. [Suspect]
     Active Substance: FENOFIBRATE
     Indication: HYPERLIPIDAEMIA
     Dates: start: 20130908, end: 20140117

REACTIONS (3)
  - Drug-induced liver injury [None]
  - Diabetes mellitus [None]
  - Hepatic fibrosis [None]

NARRATIVE: CASE EVENT DATE: 20140115
